FAERS Safety Report 10056312 (Version 10)
Quarter: 2015Q3

REPORT INFORMATION
  Report Type: Report from Study
  Country: CA (occurrence: CA)
  Receive Date: 20140403
  Receipt Date: 20150929
  Transmission Date: 20151125
  Serious: Yes (Other)
  Sender: FDA-Public Use
  Company Number: CA-ROCHE-1367313

PATIENT
  Age: 65 Year
  Sex: Male
  Weight: 93.9 kg

DRUGS (11)
  1. VEMURAFENIB [Suspect]
     Active Substance: VEMURAFENIB
     Indication: MALIGNANT MELANOMA
     Dosage: DATE OF LAST DOSE PRIOR TO SAE : 14/MAR/2014.?FREQUENCY AS PER PROTOCOL : TWICE DAILY ON DAYS 1-28 O
     Route: 048
     Dates: start: 20131002, end: 20140523
  2. COBIMETINIB [Suspect]
     Active Substance: COBIMETINIB
     Dosage: DATE OF LAST DOSE PRIOR TO FIRST EPISODE OF SAE: 13/JUN/2014?FREQUENCY AS PER PROTOCOL: DAILY ON DAY
     Route: 048
  3. SALINE [Concomitant]
     Active Substance: SODIUM CHLORIDE
     Indication: EYE INJURY
     Dosage: SALINE EYEDROPS
     Route: 047
     Dates: start: 20140525
  4. METFORMIN [Concomitant]
     Active Substance: METFORMIN HYDROCHLORIDE
     Indication: HYPERGLYCAEMIA
     Dosage: SELECT IF ONGOING=YES
     Route: 048
     Dates: start: 20131007
  5. LACRI-LUBE (CANADA) [Concomitant]
     Indication: EYE INJURY
     Route: 047
     Dates: start: 20140527
  6. LATANOPROST. [Concomitant]
     Active Substance: LATANOPROST
     Route: 065
     Dates: start: 20131101
  7. COBIMETINIB [Suspect]
     Active Substance: COBIMETINIB
     Indication: MALIGNANT MELANOMA
     Dosage: DATE OF LAST DOSE PRIOR TO SAE: 14/MAR/2014.?FREQUENCY AS PER PROTOCOL: DAILY ON DAYS 1-21 OF EACH 2
     Route: 048
     Dates: start: 20131002
  8. VEMURAFENIB [Suspect]
     Active Substance: VEMURAFENIB
     Dosage: DATE OF LAST DOSE PRIOR TO FIRST EPISODE OF SAE : 13/JUN/2014?FREQUENCY AS PER PROTOCOL : TWICE DAIL
     Route: 048
  9. ROSUVASTATIN [Concomitant]
     Active Substance: ROSUVASTATIN
     Indication: HYPERCHOLESTEROLAEMIA
     Route: 048
     Dates: start: 20131007
  10. NORVASC [Concomitant]
     Active Substance: AMLODIPINE BESYLATE
     Indication: HYPERTENSION
     Route: 048
     Dates: start: 20131114
  11. TANTUM [Concomitant]
     Active Substance: BENZYDAMINE HYDROCHLORIDE
     Indication: STOMATITIS
     Route: 048
     Dates: start: 20131210, end: 20140429

REACTIONS (1)
  - Chorioretinopathy [Not Recovered/Not Resolved]

NARRATIVE: CASE EVENT DATE: 20140314
